FAERS Safety Report 5380539-5 (Version None)
Quarter: 2007Q3

REPORT INFORMATION
  Report Type: 
  Country: None (occurrence: None)
  Receive Date: 20070703
  Receipt Date: 20070618
  Transmission Date: 20080115
  Serious: Yes (Hospitalization)
  Sender: FDA-Public Use
  Company Number: 02100-JPN-07-0187

PATIENT
  Age: 67 Year
  Sex: Female

DRUGS (6)
  1. CILOSTAZOL [Suspect]
     Indication: DIABETIC VASCULAR DISORDER
     Dosage: 200 MG ORAL
     Route: 048
     Dates: start: 20050819
  2. IRBESARTAN [Concomitant]
  3. REGULAR INSULIN 30% / ISOPHANE INSULIN 70% [Concomitant]
  4. CALCIUM GLUCONATE/ CALCIUM LACTATE/ ERGOCALCIFEROL, DRIED/ PRECIPITATE [Concomitant]
  5. CALCIUM ASCORBATE [Concomitant]
  6. GAMMA-LINOLENIC ACID [Concomitant]

REACTIONS (1)
  - COLON CANCER [None]
